FAERS Safety Report 11418770 (Version 1)
Quarter: 2015Q3

REPORT INFORMATION
  Report Type: Spontaneous
  Country: GB (occurrence: None)
  Receive Date: 20150824
  Receipt Date: 20150824
  Transmission Date: 20151125
  Serious: Yes (Hospitalization, Other)
  Sender: FDA-Public Use
  Company Number: 2015-12019

PATIENT
  Age: 61 Year
  Sex: Male

DRUGS (16)
  1. MYDRILATE (CYCLOPENTOLATE HYDROCHLORIDE) [Concomitant]
  2. BETNESOL (BETAMETHASONE SODIUM PHOSPHATE) [Concomitant]
     Active Substance: BETAMETHASONE SODIUM PHOSPHATE
  3. FLUORESCEIN [Concomitant]
     Active Substance: FLUORESCEIN
  4. INFLUENZA VACCINE INACTIVATED (INFLUENZA VACCINE) [Concomitant]
  5. RAMIPRIL. [Concomitant]
     Active Substance: RAMIPRIL
  6. LANSOPRAZOLE. [Concomitant]
     Active Substance: LANSOPRAZOLE
  7. HYDROXOCOBALAMIN [Concomitant]
     Active Substance: HYDROXOCOBALAMIN
  8. METFORMIN [Concomitant]
     Active Substance: METFORMIN HYDROCHLORIDE
  9. PARACETAMOL [Concomitant]
     Active Substance: ACETAMINOPHEN
  10. AFLIBERCEPT IAI [Suspect]
     Active Substance: AFLIBERCEPT
     Indication: DIABETIC RETINOPATHY
     Dates: start: 20140924
  11. CO-CODAMOL EFF (CODEINE PHOSPHATE, PARACETAMOL) [Concomitant]
  12. IBUPROFEN. [Concomitant]
     Active Substance: IBUPROFEN
  13. CHLORAMPHENICOL [Concomitant]
     Active Substance: CHLORAMPHENICOL
  14. SERTRALINE [Concomitant]
     Active Substance: SERTRALINE HYDROCHLORIDE
  15. NOVOMIX [INSULIN ASPART] [Concomitant]
     Active Substance: INSULIN ASPART
  16. ASPIRIN (ACETYLSALICYLIC ACID) [Concomitant]
     Active Substance: ASPIRIN

REACTIONS (1)
  - Vitreous haemorrhage [None]

NARRATIVE: CASE EVENT DATE: 20141025
